FAERS Safety Report 5934635-1 (Version None)
Quarter: 2008Q4

REPORT INFORMATION
  Report Type: 
  Country: None (occurrence: None)
  Receive Date: 20081029
  Receipt Date: 20081020
  Transmission Date: 20090506
  Serious: Yes (Hospitalization, Other)
  Sender: FDA-Public Use
  Company Number: AU-PFIZER INC-2008088585

PATIENT
  Sex: Female

DRUGS (2)
  1. CHAMPIX [Suspect]
     Dates: start: 20080801, end: 20080901
  2. ANTIBIOTICS [Suspect]

REACTIONS (4)
  - DYSPHAGIA [None]
  - MALAISE [None]
  - NAUSEA [None]
  - THROAT TIGHTNESS [None]
